FAERS Safety Report 13801263 (Version 1)
Quarter: 2017Q3

REPORT INFORMATION
  Report Type: Spontaneous
  Country: CN (occurrence: CN)
  Receive Date: 20170727
  Receipt Date: 20170727
  Transmission Date: 20171127
  Serious: Yes (Other)
  Sender: FDA-Public Use
  Company Number: CN-PFIZER INC-2017321031

PATIENT
  Age: 47 Year
  Sex: Female
  Weight: 54 kg

DRUGS (4)
  1. ENDOXAN /00021101/ [Suspect]
     Active Substance: CYCLOPHOSPHAMIDE
     Indication: NEOPLASM
     Dosage: 0.9 G, 1X/DAY
     Route: 041
     Dates: start: 20170421, end: 20170421
  2. SODIUM CHLORIDE. [Concomitant]
     Active Substance: SODIUM CHLORIDE
     Indication: VEHICLE SOLUTION USE
     Dosage: 135 ML, 1X/DAY
     Route: 041
     Dates: start: 20170421, end: 20170421
  3. SODIUM CHLORIDE. [Concomitant]
     Active Substance: SODIUM CHLORIDE
     Dosage: 100 UNK, UNK
     Route: 041
     Dates: start: 20170421, end: 20170421
  4. PHARMORUBICIN [Suspect]
     Active Substance: EPIRUBICIN
     Indication: NEOPLASM
     Dosage: 135 MG, 1X/DAY
     Route: 041
     Dates: start: 20170421, end: 20170421

REACTIONS (5)
  - Chest discomfort [Recovering/Resolving]
  - Nausea [Recovering/Resolving]
  - Neutropenia [Recovering/Resolving]
  - White blood cell count decreased [Recovering/Resolving]
  - Vomiting [Recovering/Resolving]

NARRATIVE: CASE EVENT DATE: 20170421
